FAERS Safety Report 5584954-6 (Version None)
Quarter: 2007Q4

REPORT INFORMATION
  Report Type: 
  Country: None (occurrence: None)
  Receive Date: 20071130
  Receipt Date: 20061003
  Transmission Date: 20080405
  Serious: Yes (Other)
  Sender: FDA-Public Use
  Company Number: WAES 0609USA00037

PATIENT
  Age: 87 Year
  Sex: Female
  Weight: 48.9885 kg

DRUGS (2)
  1. FOSAMAX [Suspect]
     Indication: OSTEOPOROSIS
     Dosage: PO
     Route: 048
     Dates: end: 20060801
  2. PREDNISONE TAB [Concomitant]

REACTIONS (1)
  - OSTEONECROSIS [None]
